FAERS Safety Report 7630275-7 (Version None)
Quarter: 2011Q3

REPORT INFORMATION
  Report Type: 
  Country: None (occurrence: None)
  Receive Date: 20110722
  Receipt Date: 20110712
  Transmission Date: 20111222
  Serious: Yes (Hospitalization, Other)
  Sender: FDA-Public Use
  Company Number: PHFR2011GB04210

PATIENT
  Sex: Female

DRUGS (2)
  1. XOLAIR [Suspect]
     Indication: ASTHMA
     Dosage: 225 MG, QW2
     Route: 065
  2. DIAZEPAM [Suspect]
     Route: 065

REACTIONS (2)
  - OVERDOSE [None]
  - RESPIRATORY FAILURE [None]
